FAERS Safety Report 6551643-0 (Version None)
Quarter: 2010Q1

REPORT INFORMATION
  Report Type: 
  Country: None (occurrence: None)
  Receive Date: 20100120
  Receipt Date: 20100105
  Transmission Date: 20100710
  Serious: Yes (Death)
  Sender: FDA-Public Use
  Company Number: SPV1-2010-00006

PATIENT
  Age: 9 Year
  Sex: Male
  Weight: 42.5 kg

DRUGS (4)
  1. INTUNIV [Suspect]
     Indication: DRUG USE FOR UNKNOWN INDICATION
     Dosage: 1 MG, 1X/DAY:QD, ORAL
     Route: 048
     Dates: start: 20091229, end: 20091231
  2. LAMICATL (LAMOTRIGINE) [Concomitant]
  3. MELATONIN (MELATONIN) [Concomitant]
  4. TOPAMAX [Concomitant]

REACTIONS (4)
  - DRUG DOSE OMISSION [None]
  - EPILEPSY [None]
  - FEELING COLD [None]
  - MALAISE [None]
